FAERS Safety Report 4915205-0 (Version None)
Quarter: 2006Q1

REPORT INFORMATION
  Report Type: 
  Country: None (occurrence: None)
  Receive Date: 20060216
  Receipt Date: 20060216
  Transmission Date: 20060701
  Serious: Yes (Hospitalization)
  Sender: FDA-Public Use
  Company Number: None

PATIENT
  Sex: Female
  Weight: 57.6068 kg

DRUGS (1)
  1. KEPPRA [Suspect]
     Indication: CONVULSION
     Dosage: 750 MG PO BID PRIOR TO ADMISSION

REACTIONS (8)
  - CONFUSIONAL STATE [None]
  - CONVULSION [None]
  - FACE INJURY [None]
  - FALL [None]
  - HEAD INJURY [None]
  - HEADACHE [None]
  - MOUTH INJURY [None]
  - TONGUE BITING [None]
